FAERS Safety Report 6285241-3 (Version None)
Quarter: 2009Q3

REPORT INFORMATION
  Report Type: 
  Country: None (occurrence: None)
  Receive Date: 20090727
  Receipt Date: 20090723
  Transmission Date: 20100115
  Serious: Yes (Death, Other)
  Sender: FDA-Public Use
  Company Number: SK-WYE-H10296309

PATIENT
  Age: 51 Year
  Sex: Male

DRUGS (2)
  1. RAPAMUNE [Suspect]
     Indication: PROPHYLAXIS AGAINST TRANSPLANT REJECTION
     Route: 048
  2. RAPAMUNE [Suspect]
     Route: 048

REACTIONS (3)
  - DEATH [None]
  - GASTROENTERITIS [None]
  - MULTI-ORGAN FAILURE [None]
